FAERS Safety Report 8030486 (Version 3)
Quarter: 2014Q1

REPORT INFORMATION
  Report Type: Spontaneous
  Country: JP (occurrence: JP)
  Receive Date: 20110712
  Receipt Date: 20140327
  Transmission Date: 20141002
  Serious: Yes (Hospitalization)
  Sender: FDA-Public Use
  Company Number: JP-NOVOPROD-331221

PATIENT
  Age: 52 Year
  Sex: Male
  Weight: 55 kg

DRUGS (4)
  1. NOVORAPID CHU FLEXPEN [Suspect]
     Indication: TYPE 2 DIABETES MELLITUS
     Dosage: 24 U, QD (12 U MORNING AND 12 U NOON)
     Route: 058
     Dates: start: 200907, end: 20090914
  2. NOVORAPID 30 MIX CHU FLEXPEN [Suspect]
     Indication: TYPE 2 DIABETES MELLITUS
     Dosage: 4 U, QD (EVENING)
     Route: 058
     Dates: start: 200907, end: 20090914
  3. LANTUS /01483501/ [Suspect]
     Indication: TYPE 2 DIABETES MELLITUS
     Dosage: 10 U, QD
     Route: 058
     Dates: end: 20090914
  4. AMARYL [Concomitant]
     Indication: TYPE 2 DIABETES MELLITUS
     Dosage: 1 TO 3 MG. QD
     Route: 048

REACTIONS (5)
  - Anti-insulin antibody positive [Recovering/Resolving]
  - Diabetes mellitus inadequate control [Recovered/Resolved]
  - Injection site rash [Recovered/Resolved]
  - Injection site erythema [Recovering/Resolving]
  - Injection site induration [Recovering/Resolving]
